FAERS Safety Report 4726487-2 (Version None)
Quarter: 2005Q3

REPORT INFORMATION
  Report Type: 
  Country: None (occurrence: None)
  Receive Date: 20050726
  Receipt Date: 20050715
  Transmission Date: 20060218
  Serious: Yes (Death)
  Sender: FDA-Public Use
  Company Number: S05-GER-02285-01

PATIENT
  Age: 19 Year
  Sex: Male

DRUGS (2)
  1. CIPRALEX (ESCITALOPRAM) [Suspect]
     Indication: DEPRESSION
     Dosage: 10 MG QD; PO
     Route: 048
     Dates: start: 20050615, end: 20050622
  2. ZOPICLONE [Concomitant]

REACTIONS (3)
  - COMPLETED SUICIDE [None]
  - INCORRECT DOSE ADMINISTERED [None]
  - INSOMNIA [None]
